FAERS Safety Report 8476669-1 (Version None)
Quarter: 2012Q2

REPORT INFORMATION
  Report Type: 
  Country: None (occurrence: None)
  Receive Date: 20120628
  Receipt Date: 20120620
  Transmission Date: 20120825
  Serious: Yes (Hospitalization, Other)
  Sender: FDA-Public Use
  Company Number: US-BAXTER-2012BAX009372

PATIENT
  Sex: Female
  Weight: 70.45 kg

DRUGS (5)
  1. GAMMAGARD LIQUID [Suspect]
     Route: 042
  2. HUMALOG [Concomitant]
     Route: 058
  3. GAMMAGARD LIQUID [Suspect]
     Route: 042
     Dates: start: 20120523
  4. GAMMAGARD LIQUID [Suspect]
     Indication: CHRONIC INFLAMMATORY DEMYELINATING POLYRADICULONEUROPATHY
     Route: 042
     Dates: start: 20120321, end: 20120321
  5. LANTUS [Concomitant]
     Dosage: 50 UNITS
     Route: 058

REACTIONS (6)
  - SOMNOLENCE [None]
  - BLOOD GLUCOSE DECREASED [None]
  - MENINGITIS ASEPTIC [None]
  - APHASIA [None]
  - MEMORY IMPAIRMENT [None]
  - HYPOXIA [None]
